FAERS Safety Report 4504394-8 (Version None)
Quarter: 2004Q4

REPORT INFORMATION
  Report Type: 
  Country: None (occurrence: None)
  Receive Date: 20041118
  Receipt Date: 20041103
  Transmission Date: 20050328
  Serious: Yes (Other)
  Sender: FDA-Public Use
  Company Number: AU-ROCHE-385327

PATIENT
  Age: 28 Year
  Sex: Female

DRUGS (2)
  1. ROACCUTANE [Suspect]
     Indication: ACNE
     Route: 048
     Dates: start: 20030915, end: 20031215
  2. ROACCUTANE [Suspect]
     Route: 048
     Dates: start: 20040915

REACTIONS (1)
  - DYSURIA [None]
